FAERS Safety Report 20095982 (Version 1)
Quarter: 2021Q4

REPORT INFORMATION
  Report Type: Spontaneous
  Country: US (occurrence: None)
  Receive Date: 20211121
  Receipt Date: 20211121
  Transmission Date: 20220303
  Serious: No
  Sender: FDA-Public Use
  Company Number: None

PATIENT
  Age: 21 Year
  Sex: Female
  Weight: 85.5 kg

DRUGS (2)
  1. CASIRIVIMAB [Suspect]
     Active Substance: CASIRIVIMAB
     Indication: Product used for unknown indication
     Dates: start: 20211112, end: 20211112
  2. CASIRIVIMAB [Concomitant]
     Active Substance: CASIRIVIMAB
     Indication: Product used for unknown indication
     Dates: start: 20211112, end: 20211112

REACTIONS (2)
  - Nausea [None]
  - Tachycardia [None]

NARRATIVE: CASE EVENT DATE: 20211112
